FAERS Safety Report 6566593-3 (Version None)
Quarter: 2010Q1

REPORT INFORMATION
  Report Type: 
  Country: None (occurrence: None)
  Receive Date: 20100202
  Receipt Date: 20100125
  Transmission Date: 20100710
  Serious: Yes (Hospitalization)
  Sender: FDA-Public Use
  Company Number: US-SANOFI-AVENTIS-2010SA004871

PATIENT
  Age: 87 Year
  Sex: Male

DRUGS (8)
  1. MULTAQ [Suspect]
     Indication: ATRIAL FIBRILLATION
     Route: 048
     Dates: start: 20091028, end: 20091210
  2. ZETIA [Concomitant]
     Route: 048
     Dates: start: 20060101
  3. TORSEMIDE [Concomitant]
     Indication: DIURETIC THERAPY
     Route: 048
     Dates: start: 19990101
  4. METOPROLOL TARTRATE [Concomitant]
     Indication: HEART RATE
     Route: 048
     Dates: start: 20090701
  5. RANITIDINE [Concomitant]
     Indication: ULCER
     Route: 048
     Dates: start: 20081101
  6. ISOSORBIDE [Concomitant]
     Route: 048
     Dates: start: 19990101
  7. DIOVAN [Concomitant]
     Route: 048
     Dates: start: 19990101, end: 20091101
  8. PULMICORT [Concomitant]
     Indication: ASTHMA
     Dosage: DOSE:2 PUFF(S)
     Route: 055
     Dates: start: 20080101

REACTIONS (9)
  - ANXIETY [None]
  - ASTHENIA [None]
  - CONFUSIONAL STATE [None]
  - DIZZINESS [None]
  - DYSPNOEA [None]
  - FATIGUE [None]
  - OEDEMA PERIPHERAL [None]
  - PNEUMONIA [None]
  - WEIGHT INCREASED [None]
